FAERS Safety Report 7328597-2 (Version None)
Quarter: 2011Q1

REPORT INFORMATION
  Report Type: 
  Country: None (occurrence: None)
  Receive Date: 20110303
  Receipt Date: 20110117
  Transmission Date: 20110831
  Serious: Yes (Other)
  Sender: FDA-Public Use
  Company Number: CZ-JNJFOC-20110205295

PATIENT
  Age: 51 Year
  Sex: Female

DRUGS (3)
  1. LITHIUM CARBONATE [Interacting]
     Route: 065
  2. HALOPERIDOL [Suspect]
     Indication: ABNORMAL BEHAVIOUR
     Route: 030
  3. LITHIUM CARBONATE [Interacting]
     Indication: ABNORMAL BEHAVIOUR
     Route: 065

REACTIONS (8)
  - NAUSEA [None]
  - HYPERTONIA [None]
  - NEGATIVISM [None]
  - DRUG INTERACTION [None]
  - HYPERSOMNIA [None]
  - SALIVARY HYPERSECRETION [None]
  - VOMITING [None]
  - MYOCARDIAL ISCHAEMIA [None]
